FAERS Safety Report 8846543 (Version 1)
Quarter: 2012Q4

REPORT INFORMATION
  Report Type: 
  Country: US (occurrence: US)
  Receive Date: 20121017
  Receipt Date: 20121017
  Transmission Date: 20130627
  Serious: Yes (Hospitalization)
  Sender: FDA-Public Use
  Company Number: US-GLAXOSMITHKLINE-A0997567A

PATIENT
  Age: 45 Year
  Sex: Female

DRUGS (15)
  1. SEREVENT DISKUS [Suspect]
     Indication: CHRONIC OBSTRUCTIVE PULMONARY DISEASE
     Route: 055
  2. LYRICA [Suspect]
     Indication: FIBROMYALGIA
     Dosage: 100MG Four times per day
     Route: 048
  3. XOPENEX [Suspect]
     Indication: CHRONIC OBSTRUCTIVE PULMONARY DISEASE
  4. DIAZEPAM [Concomitant]
     Indication: PAIN
     Dosage: 10MG Three times per day
     Dates: start: 2003
  5. EPI PEN [Concomitant]
     Indication: HYPERSENSITIVITY
     Dosage: .3MG As required
  6. METHOCARBAMOL [Concomitant]
     Indication: PAIN
     Dosage: 750MG Four times per day
  7. PATANOL [Concomitant]
     Indication: HYPERSENSITIVITY
     Route: 047
  8. ACULAR [Concomitant]
     Indication: HYPERSENSITIVITY
     Route: 047
  9. LORATADINE [Concomitant]
     Indication: HYPERSENSITIVITY
     Dosage: 10MG As required
  10. FUROSEMIDE [Concomitant]
     Indication: ILL-DEFINED DISORDER
     Dates: start: 2000
  11. SIMVASTATIN [Concomitant]
     Indication: BLOOD CHOLESTEROL INCREASED
     Dosage: 20MG Per day
     Route: 048
  12. LEVETIRACETAM [Concomitant]
     Indication: CONVULSION
     Dosage: 500MG Twice per day
  13. LAMICTAL [Concomitant]
     Indication: CONVULSION
     Dosage: 200MG Twice per day
     Route: 048
  14. DOXYCYCLINE [Concomitant]
     Indication: DERMAL CYST
     Dosage: 100MG Twice per day
  15. CLINDAMYCIN [Concomitant]
     Indication: DERMAL CYST

REACTIONS (7)
  - Lung disorder [Unknown]
  - Loss of consciousness [Unknown]
  - Drug administration error [Unknown]
  - High density lipoprotein decreased [Unknown]
  - Low density lipoprotein increased [Unknown]
  - Drug ineffective [Unknown]
  - Drug dose omission [None]
